FAERS Safety Report 4648534-9 (Version None)
Quarter: 2005Q2

REPORT INFORMATION
  Report Type: 
  Country: None (occurrence: None)
  Receive Date: 20050427
  Receipt Date: 20050413
  Transmission Date: 20051028
  Serious: Yes (Hospitalization)
  Sender: FDA-Public Use
  Company Number: B0377715A

PATIENT
  Age: 18 Year
  Sex: Female

DRUGS (3)
  1. VENTOLIN [Suspect]
     Indication: ASTHMA
     Dosage: PER DAY/INHALED
  2. VENTOLIN INFUSION (ALBUTEROL SULFATE) [Suspect]
     Indication: ASTHMA
     Dosage: INTRAVENOUS
     Route: 042
  3. CORTICOSTEROID [Concomitant]

REACTIONS (11)
  - ASTHMA [None]
  - CONDITION AGGRAVATED [None]
  - FATIGUE [None]
  - HEART RATE INCREASED [None]
  - HYPERGLYCAEMIA [None]
  - HYPOKALAEMIA [None]
  - LACTIC ACIDOSIS [None]
  - METABOLIC ACIDOSIS [None]
  - RESPIRATORY ACIDOSIS [None]
  - RESPIRATORY FAILURE [None]
  - SOMNOLENCE [None]
